FAERS Safety Report 4922712-3 (Version None)
Quarter: 2006Q1

REPORT INFORMATION
  Report Type: 
  Country: None (occurrence: None)
  Receive Date: 20060224
  Receipt Date: 20050930
  Transmission Date: 20060701
  Serious: Yes (Other)
  Sender: FDA-Public Use
  Company Number: US-MERCK-0510USA01998

PATIENT
  Age: 51 Year
  Sex: Male
  Weight: 127 kg

DRUGS (18)
  1. VIOXX [Suspect]
     Indication: ARTHRITIS
     Route: 048
     Dates: start: 20000301, end: 20040901
  2. VIOXX [Suspect]
     Route: 048
     Dates: start: 20000301, end: 20040901
  3. VIOXX [Suspect]
     Indication: PAIN IN EXTREMITY
     Route: 048
     Dates: start: 20000301, end: 20040901
  4. VIOXX [Suspect]
     Route: 048
     Dates: start: 20000301, end: 20040901
  5. CELEBREX [Concomitant]
     Route: 065
  6. MOTRIN [Concomitant]
     Route: 065
  7. NEUROTONIN CAPSULES [Concomitant]
     Route: 065
  8. OXYCONTIN [Concomitant]
     Route: 065
  9. VICODIN [Concomitant]
     Indication: BACK PAIN
     Route: 065
     Dates: start: 19990101
  10. VICODIN [Concomitant]
     Indication: PAIN IN EXTREMITY
     Route: 065
     Dates: start: 19990101
  11. TENORMIN [Concomitant]
     Indication: HYPERTENSION
     Route: 065
     Dates: start: 19840101
  12. ACTOS [Concomitant]
     Indication: DIABETES MELLITUS NON-INSULIN-DEPENDENT
     Route: 065
  13. SYNTHROID [Concomitant]
     Indication: FATIGUE
     Route: 065
  14. TESTOSTERONE [Concomitant]
     Indication: BLOOD TESTOSTERONE DECREASED
     Route: 065
  15. NORVASC [Concomitant]
     Indication: CHEST PAIN
     Route: 065
     Dates: start: 20050701, end: 20050901
  16. ASPIRIN [Concomitant]
     Indication: PROPHYLAXIS
     Route: 065
     Dates: start: 19960101
  17. ZOCOR [Concomitant]
     Indication: BLOOD CHOLESTEROL INCREASED
     Route: 065
     Dates: start: 20050801
  18. ZOLOFT [Concomitant]
     Indication: DEPRESSION
     Route: 065
     Dates: start: 19980101

REACTIONS (5)
  - ANXIETY [None]
  - DEPRESSION [None]
  - MYOCARDIAL INFARCTION [None]
  - SOCIAL PHOBIA [None]
  - SUICIDAL IDEATION [None]
